FAERS Safety Report 4507666-6 (Version None)
Quarter: 2004Q4

REPORT INFORMATION
  Report Type: 
  Country: None (occurrence: None)
  Receive Date: 20041123
  Receipt Date: 20041112
  Transmission Date: 20050328
  Serious: Yes (Hospitalization)
  Sender: FDA-Public Use
  Company Number: FR-BRISTOL-MYERS SQUIBB COMPANY-12770251

PATIENT
  Age: 74 Year
  Sex: Female

DRUGS (6)
  1. GLUCOPHAGE [Suspect]
     Route: 048
     Dates: end: 20040721
  2. ATACAND [Suspect]
     Route: 048
     Dates: end: 20040721
  3. FUROSEMIDE [Suspect]
     Dates: end: 20040721
  4. CATAPRES [Concomitant]
  5. LEVOTHYROX [Concomitant]
  6. ZYLORIC [Concomitant]

REACTIONS (2)
  - ACIDOSIS [None]
  - RENAL FAILURE ACUTE [None]
